FAERS Safety Report 5766031-4 (Version None)
Quarter: 2008Q2

REPORT INFORMATION
  Report Type: 
  Country: None (occurrence: None)
  Receive Date: 20080606
  Receipt Date: 20080529
  Transmission Date: 20081010
  Serious: Yes (Hospitalization, Other)
  Sender: FDA-Public Use
  Company Number: 2008-01875

PATIENT
  Age: 58 Year
  Sex: Female
  Weight: 38.5 kg

DRUGS (2)
  1. VELCADE [Suspect]
     Indication: LIP AND/OR ORAL CAVITY CANCER
     Dosage: 1.3 MG/M2, IV BOLUS
     Route: 042
     Dates: start: 20050307, end: 20050428
  2. DOXORUBICIN HCL [Suspect]
     Indication: LIP AND/OR ORAL CAVITY CANCER
     Dosage: 20 MG/M2, IV BOLUS
     Route: 040
     Dates: start: 20050307, end: 20050627

REACTIONS (16)
  - ABDOMINAL PAIN UPPER [None]
  - ANOREXIA [None]
  - CHILLS [None]
  - DEHYDRATION [None]
  - DIARRHOEA [None]
  - DYSPNOEA [None]
  - GINGIVITIS [None]
  - INFECTION [None]
  - NAUSEA [None]
  - NEUTROPENIA [None]
  - OESOPHAGEAL PAIN [None]
  - PERIPHERAL SENSORY NEUROPATHY [None]
  - TOOTH INFECTION [None]
  - VOMITING [None]
  - WEIGHT DECREASED [None]
  - WHITE BLOOD CELL COUNT DECREASED [None]
